FAERS Safety Report 6100473-2 (Version None)
Quarter: 2009Q1

REPORT INFORMATION
  Report Type: 
  Country: None (occurrence: None)
  Receive Date: 20090303
  Receipt Date: 20090217
  Transmission Date: 20090719
  Serious: Yes (Other)
  Sender: FDA-Public Use
  Company Number: MY-PFIZER INC-2009173783

PATIENT

DRUGS (3)
  1. SULPERAZON [Suspect]
     Indication: BACTERIAL SEPSIS
     Dosage: UNK
     Route: 042
     Dates: start: 20080301
  2. TAZOCIN [Suspect]
     Indication: BACTERIAL SEPSIS
     Dosage: UNK
     Route: 042
     Dates: start: 20080301
  3. MERONEM [Suspect]
     Indication: BACTERIAL SEPSIS
     Dosage: UNK
     Route: 042
     Dates: start: 20080301

REACTIONS (1)
  - ALANINE AMINOTRANSFERASE INCREASED [None]
